FAERS Safety Report 6652786-3 (Version None)
Quarter: 2010Q1

REPORT INFORMATION
  Report Type: 
  Country: None (occurrence: None)
  Receive Date: 20100326
  Receipt Date: 20100322
  Transmission Date: 20100710
  Serious: Yes (Death)
  Sender: FDA-Public Use
  Company Number: GB-ASTRAZENECA-2010SE12419

PATIENT
  Age: 63 Year
  Sex: Male

DRUGS (6)
  1. SEROQUEL XR [Suspect]
     Indication: MAJOR DEPRESSION
     Route: 048
     Dates: start: 20091218
  2. SEROQUEL XR [Suspect]
     Route: 048
     Dates: start: 20100102
  3. LISINOPRIL [Concomitant]
  4. LANSOPRAZOLE [Concomitant]
  5. PREGABOLINE [Concomitant]
  6. FLUOXETINE [Concomitant]

REACTIONS (1)
  - DEATH [None]
